FAERS Safety Report 16588186 (Version 1)
Quarter: 2019Q3

REPORT INFORMATION
  Report Type: Report from Study
  Country: US (occurrence: US)
  Receive Date: 20190717
  Receipt Date: 20190717
  Transmission Date: 20191004
  Serious: Yes (Death)
  Sender: FDA-Public Use
  Company Number: US-EXELIXIS-CABO-19022585

PATIENT
  Sex: Male
  Weight: 154.6 kg

DRUGS (10)
  1. LANTUS [Concomitant]
     Active Substance: INSULIN GLARGINE
  2. ASPIRIN. [Concomitant]
     Active Substance: ASPIRIN
  3. MORPHINE [Concomitant]
     Active Substance: MORPHINE
  4. COREG [Concomitant]
     Active Substance: CARVEDILOL
  5. MULTIVITAMINS, COMBINATIONS [Concomitant]
     Active Substance: VITAMINS
  6. VITAMIN D NOS [Concomitant]
     Active Substance: VITAMIN D NOS
  7. LIPITOR [Concomitant]
     Active Substance: ATORVASTATIN CALCIUM
  8. CABOMETYX [Suspect]
     Active Substance: CABOZANTINIB S-MALATE
     Indication: RENAL CELL CARCINOMA
     Dosage: 40 MG, QD
     Route: 048
     Dates: start: 20170802
  9. NORVASC [Concomitant]
     Active Substance: AMLODIPINE BESYLATE
  10. NOVOLOG [Concomitant]
     Active Substance: INSULIN ASPART

REACTIONS (1)
  - Death [Fatal]
